FAERS Safety Report 6183325-1 (Version None)
Quarter: 2009Q2

REPORT INFORMATION
  Report Type: 
  Country: None (occurrence: None)
  Receive Date: 20090507
  Receipt Date: 20090430
  Transmission Date: 20091009
  Serious: Yes (Other)
  Sender: FDA-Public Use
  Company Number: AU-B.I. PHARMACEUTICALS,INC./RIDGEFIELD-2009-AU-00174AU

PATIENT
  Age: 55 Year
  Sex: Female

DRUGS (3)
  1. MOBIC [Suspect]
     Indication: PROPHYLAXIS
  2. AMOXYCILLIN SODIUM [Concomitant]
  3. CEPHALEXIN [Concomitant]

REACTIONS (2)
  - AUTOIMMUNE HEPATITIS [None]
  - HEPATITIS [None]
